FAERS Safety Report 23447611 (Version 1)
Quarter: 2024Q1

REPORT INFORMATION
  Report Type: Spontaneous
  Country: CN (occurrence: None)
  Receive Date: 20240126
  Receipt Date: 20240126
  Transmission Date: 20240409
  Serious: Yes (Other)
  Sender: FDA-Public Use
  Company Number: 2024A015533

PATIENT
  Age: 62 Year
  Sex: Female

DRUGS (3)
  1. GEFITINIB [Suspect]
     Active Substance: GEFITINIB
     Indication: Lung adenocarcinoma
     Route: 048
     Dates: start: 201806, end: 201911
  2. CISPLATIN [Concomitant]
     Active Substance: CISPLATIN
     Indication: Lung adenocarcinoma
     Route: 034
     Dates: start: 201806
  3. ENDOSTATIN [Concomitant]
     Active Substance: ENDOSTATIN
     Indication: Neovascularisation

REACTIONS (3)
  - Malignant neoplasm progression [Unknown]
  - Drug resistance mutation [Unknown]
  - Malignant pleural effusion [Unknown]

NARRATIVE: CASE EVENT DATE: 20191101
